FAERS Safety Report 10060391 (Version 1)
Quarter: 2014Q2

REPORT INFORMATION
  Report Type: Spontaneous
  Country: US (occurrence: US)
  Receive Date: 20140404
  Receipt Date: 20140404
  Transmission Date: 20141212
  Serious: Yes (Other)
  Sender: FDA-Public Use
  Company Number: US-ACTAVIS-2014-06267

PATIENT
  Sex: Female
  Weight: 100 kg

DRUGS (4)
  1. CLONAZEPAM (AELLC) [Suspect]
     Indication: PANIC ATTACK
     Dosage: 1 MG, TID
     Route: 048
     Dates: end: 20140306
  2. CLONAZEPAM (AELLC) [Suspect]
     Dosage: 1 MG, TID
     Route: 048
     Dates: start: 20140318
  3. SEROQUEL [Concomitant]
     Indication: BIPOLAR DISORDER
     Dosage: UNK, DAILY
     Route: 048
  4. ZOLOFT [Concomitant]
     Indication: DEPRESSION
     Dosage: UNK, DAILY
     Route: 048

REACTIONS (7)
  - Drug withdrawal syndrome [Recovered/Resolved]
  - Hallucinations, mixed [Recovered/Resolved]
  - Panic attack [Recovered/Resolved]
  - Anger [Recovered/Resolved]
  - Lethargy [Unknown]
  - Somnolence [Unknown]
  - Drug interaction [Unknown]
